FAERS Safety Report 4384879-8 (Version None)
Quarter: 2004Q2

REPORT INFORMATION
  Report Type: 
  Country: None (occurrence: None)
  Receive Date: 20040623
  Receipt Date: 20040618
  Transmission Date: 20050107
  Serious: Yes (Other)
  Sender: FDA-Public Use
  Company Number: 04-06-0881

PATIENT
  Age: 68 Year
  Sex: Male

DRUGS (4)
  1. VERAPAMIL HCL [Suspect]
     Indication: HYPERTENSION
     Dosage: 180MG ER ORAL
     Route: 048
     Dates: end: 20040401
  2. HYZAAR [Concomitant]
  3. PRILOSEC [Concomitant]
  4. ASPIRIN [Concomitant]

REACTIONS (5)
  - ANXIETY [None]
  - ATRIAL FIBRILLATION [None]
  - CARDIAC STRESS TEST ABNORMAL [None]
  - CHEST DISCOMFORT [None]
  - GASTROOESOPHAGEAL REFLUX DISEASE [None]
